FAERS Safety Report 6015629-7 (Version None)
Quarter: 2008Q4

REPORT INFORMATION
  Report Type: 
  Country: None (occurrence: None)
  Receive Date: 20081222
  Receipt Date: 20081121
  Transmission Date: 20090506
  Serious: No
  Sender: FDA-Public Use
  Company Number: US-BAYER-200839040NA

PATIENT
  Sex: Female

DRUGS (1)
  1. MENOSTAR [Suspect]
     Indication: DRUG USE FOR UNKNOWN INDICATION
     Route: 062
     Dates: start: 20081101

REACTIONS (2)
  - MIDDLE INSOMNIA [None]
  - NIGHT SWEATS [None]
